FAERS Safety Report 15277634 (Version 1)
Quarter: 2018Q3

REPORT INFORMATION
  Report Type: Report from Study
  Country: DE (occurrence: DE)
  Receive Date: 20180814
  Receipt Date: 20180814
  Transmission Date: 20181010
  Serious: Yes (Other)
  Sender: FDA-Public Use
  Company Number: DE-TEVA-2018-DE-939608

PATIENT
  Age: 77 Year
  Sex: Female
  Weight: 54 kg

DRUGS (6)
  1. XELODA [Suspect]
     Active Substance: CAPECITABINE
     Indication: PRODUCT USED FOR UNKNOWN INDICATION
     Route: 065
     Dates: start: 20120530, end: 20120724
  2. 5?FU [Suspect]
     Active Substance: FLUOROURACIL
     Indication: METASTATIC GASTRIC CANCER
     Dosage: LAST DOSE PRIOR TO EVENT: 14/NOV/2012
     Route: 042
  3. 5?FU [Suspect]
     Active Substance: FLUOROURACIL
     Dosage: ADMINISTRATION OVER 2 DAYS
     Route: 042
  4. LEUKOVORIN [Suspect]
     Active Substance: LEUCOVORIN SODIUM
     Indication: METASTATIC GASTRIC CANCER
     Dosage: LAST DOSE PRIOR TO EVENT: 14/NOV/2012
     Route: 042
  5. IRINOTECAN [Suspect]
     Active Substance: IRINOTECAN
     Indication: METASTATIC GASTRIC CANCER
     Dosage: LAST DOSE PRIOR TO EVENT: 14/NOV/2012
     Route: 042
  6. HERCEPTIN [Suspect]
     Active Substance: TRASTUZUMAB
     Indication: METASTATIC GASTRIC CANCER
     Dosage: LAST DOSE PRIOR TO EVENT: 14/NOV/2012
     Route: 042

REACTIONS (1)
  - Cardiotoxicity [Recovered/Resolved]

NARRATIVE: CASE EVENT DATE: 201211
